FAERS Safety Report 8412415-5 (Version None)
Quarter: 2012Q2

REPORT INFORMATION
  Report Type: 
  Country: None (occurrence: None)
  Receive Date: 20120605
  Receipt Date: 20120517
  Transmission Date: 20120825
  Serious: No
  Sender: FDA-Public Use
  Company Number: US-AMGEN-USASP2012031310

PATIENT
  Age: 65 Year
  Sex: Female

DRUGS (1)
  1. ENBREL [Suspect]
     Indication: RHEUMATOID ARTHRITIS
     Dosage: 50 MG, EVERY 1 - 2 WEEKS
     Route: 058
     Dates: start: 20030901

REACTIONS (8)
  - PAIN [None]
  - DYSPHONIA [None]
  - SINUS DISORDER [None]
  - COUGH [None]
  - NASOPHARYNGITIS [None]
  - SEASONAL ALLERGY [None]
  - FLUID RETENTION [None]
  - INCREASED UPPER AIRWAY SECRETION [None]
